FAERS Safety Report 15385104 (Version 4)
Quarter: 2021Q4

REPORT INFORMATION
  Report Type: Spontaneous
  Country: JP (occurrence: JP)
  Receive Date: 20180914
  Receipt Date: 20211104
  Transmission Date: 20220303
  Serious: Yes (Hospitalization, Other)
  Sender: FDA-Public Use
  Company Number: JP-CHUGAI-A2018039506ROCHE

PATIENT
  Age: 70 Year
  Sex: Female
  Weight: 45 kg

DRUGS (6)
  1. TARCEVA [Suspect]
     Active Substance: ERLOTINIB HYDROCHLORIDE
     Indication: Lung adenocarcinoma
     Route: 048
     Dates: start: 20180627, end: 20180710
  2. TARCEVA [Suspect]
     Active Substance: ERLOTINIB HYDROCHLORIDE
     Route: 048
     Dates: start: 20180711, end: 20181002
  3. LIVALO [Concomitant]
     Active Substance: PITAVASTATIN CALCIUM
     Indication: Product used for unknown indication
     Dosage: (DOSAGE IS UNCERTAIN), UNKNOWN FREQ.
     Route: 048
  4. PERSANTINE [Concomitant]
     Active Substance: DIPYRIDAMOLE
     Indication: Product used for unknown indication
     Dosage: (DOSAGE IS UNCERTAIN), UNKNOWN FREQ.
     Route: 048
  5. MIGLITOL [Concomitant]
     Active Substance: MIGLITOL
     Indication: Product used for unknown indication
     Dosage: (DOSAGE IS UNCERTAIN), UNKNOWN FREQ.
     Route: 048
  6. JANUVIA [Concomitant]
     Active Substance: SITAGLIPTIN PHOSPHATE
     Indication: Product used for unknown indication
     Dosage: (DOSAGE IS UNCERTAIN), UNKNOWN FREQ.
     Route: 065

REACTIONS (3)
  - Cardiac dysfunction [Recovering/Resolving]
  - Cardiac failure congestive [Recovering/Resolving]
  - Cardiomyopathy [Unknown]

NARRATIVE: CASE EVENT DATE: 20180801
